FAERS Safety Report 10248850 (Version 1)
Quarter: 2014Q2

REPORT INFORMATION
  Report Type: Spontaneous
  Country: US (occurrence: None)
  Receive Date: 20140618
  Receipt Date: 20140618
  Transmission Date: 20141212
  Serious: Yes (Other)
  Sender: FDA-Public Use
  Company Number: None

PATIENT
  Sex: Female
  Weight: 57.11 kg

DRUGS (2)
  1. PHENYTOIN [Suspect]
     Indication: CONVULSION
     Route: 048
  2. CARBAMAZAPINE [Suspect]
     Indication: CONVULSION
     Route: 048

REACTIONS (3)
  - Convulsion [None]
  - Drug ineffective [None]
  - Product substitution issue [None]
